FAERS Safety Report 6943062-X (Version None)
Quarter: 2010Q3

REPORT INFORMATION
  Report Type: 
  Country: None (occurrence: None)
  Receive Date: 20100826
  Receipt Date: 20100819
  Transmission Date: 20110219
  Serious: Yes (Other)
  Sender: FDA-Public Use
  Company Number: PT-BRISTOL-MYERS SQUIBB COMPANY-15249360

PATIENT
  Age: 44 Year
  Sex: Female

DRUGS (5)
  1. ABILIFY [Suspect]
     Route: 048
     Dates: start: 20090901
  2. QUETIAPINE [Suspect]
     Dates: start: 20080701
  3. VALPROATE SODIUM [Concomitant]
  4. DIAZEPAM [Concomitant]
  5. CYAMEMAZINE [Concomitant]

REACTIONS (3)
  - DISINHIBITION [None]
  - INSOMNIA [None]
  - PSYCHOTIC DISORDER [None]
